FAERS Safety Report 24777704 (Version 1)
Quarter: 2024Q4

REPORT INFORMATION
  Report Type: Spontaneous
  Country: JP (occurrence: JP)
  Receive Date: 20241226
  Receipt Date: 20241226
  Transmission Date: 20250115
  Serious: Yes (Other)
  Sender: BAYER HEALTHCARE PHARMACEUTICALS INC.
  Company Number: JP-BAYER-2024A181827

PATIENT
  Age: 75 Year
  Sex: Male

DRUGS (2)
  1. XOFIGO [Suspect]
     Active Substance: RADIUM RA-223 DICHLORIDE
     Indication: Hormone-refractory prostate cancer
     Dosage: ADMINISTERED UP TO 6 TIMES WITH AN INTERVAL OF 4 WEEKS AT 55KBQ/KG PER DOSE
     Route: 042
     Dates: start: 20240906, end: 20241209
  2. XOFIGO [Suspect]
     Active Substance: RADIUM RA-223 DICHLORIDE
     Indication: Metastases to bone

REACTIONS (2)
  - Hormone-refractory prostate cancer [None]
  - Malaise [Recovering/Resolving]

NARRATIVE: CASE EVENT DATE: 20241202
